FAERS Safety Report 23116387 (Version 1)
Quarter: 2023Q4

REPORT INFORMATION
  Report Type: Spontaneous
  Country: US (occurrence: None)
  Receive Date: 20231027
  Receipt Date: 20231027
  Transmission Date: 20240109
  Serious: Yes (Hospitalization)
  Sender: FDA-Public Use
  Company Number: None

PATIENT
  Age: 60 Year
  Sex: Female
  Weight: 85.05 kg

DRUGS (2)
  1. YESCARTA [Suspect]
     Active Substance: AXICABTAGENE CILOLEUCEL
     Indication: Diffuse large B-cell lymphoma
     Dosage: OTHER FREQUENCY : ONCE;?
     Route: 041
     Dates: start: 20220822, end: 20220822
  2. Yescarta CAR-T cells [Concomitant]
     Dates: start: 20230822, end: 20230822

REACTIONS (10)
  - Cytokine release syndrome [None]
  - Tachypnoea [None]
  - Dyspnoea [None]
  - Hypoxia [None]
  - Mental status changes [None]
  - Immune effector cell-associated neurotoxicity syndrome [None]
  - Neurotoxicity [None]
  - Disorientation [None]
  - Encephalopathy [None]
  - Dysgraphia [None]

NARRATIVE: CASE EVENT DATE: 20230822
